FAERS Safety Report 9159974 (Version 2)
Quarter: 2013Q2

REPORT INFORMATION
  Report Type: Spontaneous
  Country: US (occurrence: None)
  Receive Date: 20130214
  Receipt Date: 20130628
  Transmission Date: 20140414
  Serious: Yes (Other)
  Sender: FDA-Public Use
  Company Number: ACO_33916_2012

PATIENT
  Age: 50 Year
  Sex: Female

DRUGS (3)
  1. AMPYRA [Suspect]
     Indication: GAIT DISTURBANCE
     Dates: start: 201006, end: 201012
  2. ANTICHOLINERGICS [Concomitant]
  3. AMBIEN OR (ZOLPIDEM TARTRATE) [Concomitant]

REACTIONS (2)
  - Convulsion [None]
  - Syncope [None]
